FAERS Safety Report 7825237-0 (Version None)
Quarter: 2011Q4

REPORT INFORMATION
  Report Type: 
  Country: None (occurrence: None)
  Receive Date: 20111019
  Receipt Date: 20111012
  Transmission Date: 20120403
  Serious: Yes (Hospitalization)
  Sender: FDA-Public Use
  Company Number: US-GLAXOSMITHKLINE-A0864386A

PATIENT
  Age: 73 Year
  Sex: Female

DRUGS (5)
  1. ZOCOR [Concomitant]
  2. AVANDIA [Suspect]
     Indication: DIABETES MELLITUS
     Dosage: 4MG PER DAY
     Route: 048
     Dates: start: 20010101, end: 20030101
  3. NORVASC [Concomitant]
  4. GLUCOPHAGE [Concomitant]
  5. PREMARIN [Concomitant]

REACTIONS (8)
  - ARRHYTHMIA [None]
  - APHASIA [None]
  - NERVOUS SYSTEM DISORDER [None]
  - MYOCARDIAL INFARCTION [None]
  - ATRIOVENTRICULAR BLOCK [None]
  - ABASIA [None]
  - DYSSTASIA [None]
  - CARDIAC FAILURE CONGESTIVE [None]
